FAERS Safety Report 22154677 (Version 1)
Quarter: 2023Q1

REPORT INFORMATION
  Report Type: Spontaneous
  Country: US (occurrence: None)
  Receive Date: 20230330
  Receipt Date: 20230330
  Transmission Date: 20230418
  Serious: Yes (Hospitalization)
  Sender: FDA-Public Use
  Company Number: US-ROCHE-3318646

PATIENT
  Age: 65 Year
  Sex: Male

DRUGS (11)
  1. RITUXAN [Suspect]
     Active Substance: RITUXIMAB
     Indication: Diffuse large B-cell lymphoma
     Route: 041
     Dates: start: 20200212, end: 20200507
  2. RITUXAN [Suspect]
     Active Substance: RITUXIMAB
     Indication: Angioimmunoblastic T-cell lymphoma
     Route: 041
     Dates: start: 20221018, end: 20221018
  3. RITUXAN [Suspect]
     Active Substance: RITUXIMAB
     Route: 041
     Dates: start: 20221021, end: 20221203
  4. CYCLOPHOSPHAMIDE [Suspect]
     Active Substance: CYCLOPHOSPHAMIDE
     Indication: Diffuse large B-cell lymphoma
     Route: 042
     Dates: start: 20200212, end: 20230115
  5. VINCRISTINE [Suspect]
     Active Substance: VINCRISTINE
     Indication: Diffuse large B-cell lymphoma
     Route: 042
     Dates: start: 20200212
  6. ETOPOSIDE [Suspect]
     Active Substance: ETOPOSIDE
     Indication: Diffuse large B-cell lymphoma
     Route: 042
     Dates: start: 20200212, end: 20221203
  7. PREDNISOLONE [Suspect]
     Active Substance: PREDNISOLONE
     Indication: Diffuse large B-cell lymphoma
     Route: 042
     Dates: start: 20200212
  8. METHOTREXATE [Concomitant]
     Active Substance: METHOTREXATE
     Route: 050
     Dates: start: 20221012, end: 20221012
  9. IFOSFAMIDE [Concomitant]
     Active Substance: IFOSFAMIDE
     Indication: Diffuse large B-cell lymphoma
     Route: 042
     Dates: start: 20221018, end: 20221018
  10. CYTARABINE [Concomitant]
     Active Substance: CYTARABINE
     Indication: Diffuse large B-cell lymphoma
     Route: 042
     Dates: start: 20221018, end: 20221203
  11. FLUDARABINE [Concomitant]
     Active Substance: FLUDARABINE PHOSPHATE
     Indication: Diffuse large B-cell lymphoma
     Route: 042
     Dates: start: 20230116, end: 20230120

REACTIONS (4)
  - Arthralgia [Not Recovered/Not Resolved]
  - Diffuse large B-cell lymphoma recurrent [Not Recovered/Not Resolved]
  - Toxicity to various agents [Recovered/Resolved]
  - Soft tissue infection [Recovered/Resolved]

NARRATIVE: CASE EVENT DATE: 20221001
